FAERS Safety Report 10569346 (Version 5)
Quarter: 2018Q1

REPORT INFORMATION
  Report Type: Spontaneous
  Country: US (occurrence: US)
  Receive Date: 20141106
  Receipt Date: 20180320
  Transmission Date: 20180508
  Serious: Yes (Hospitalization, Other)
  Sender: FDA-Public Use
  Company Number: US-TEVA-517068USA

PATIENT
  Age: 26 Year
  Sex: Male
  Weight: 104.42 kg

DRUGS (16)
  1. SYNRIBO [Suspect]
     Active Substance: OMACETAXINE MEPESUCCINATE
     Dates: end: 20160726
  2. OXYCODONE [Concomitant]
     Active Substance: OXYCODONE
     Dosage: 20 MILLIGRAM DAILY; AS NEEDED
  3. PHENERGAN [Concomitant]
     Active Substance: PROMETHAZINE HYDROCHLORIDE
     Dosage: EVERY 4-6 HOURS AS NEEDED
  4. SYNRIBO [Suspect]
     Active Substance: OMACETAXINE MEPESUCCINATE
     Dosage: MAINTENANCE
     Dates: start: 20140930
  5. BOSULIF [Concomitant]
     Active Substance: BOSUTINIB MONOHYDRATE
  6. SYNRIBO [Suspect]
     Active Substance: OMACETAXINE MEPESUCCINATE
     Dates: start: 20161005
  7. GLEEVEC [Concomitant]
     Active Substance: IMATINIB MESYLATE
     Dosage: 800 MILLIGRAM DAILY;
  8. SYNRIBO [Suspect]
     Active Substance: OMACETAXINE MEPESUCCINATE
     Indication: CHRONIC MYELOID LEUKAEMIA
     Dosage: HOME ADMINISTRATION,
     Dates: start: 20140919
  9. PROTONIX [Concomitant]
     Active Substance: PANTOPRAZOLE SODIUM
     Dosage: 80 MILLIGRAM DAILY;
  10. PAXIL [Concomitant]
     Active Substance: PAROXETINE HYDROCHLORIDE
     Dosage: 40 MILLIGRAM DAILY;
  11. XARELTO [Concomitant]
     Active Substance: RIVAROXABAN
  12. CARAFATE [Concomitant]
     Active Substance: SUCRALFATE
  13. SYNRIBO [Suspect]
     Active Substance: OMACETAXINE MEPESUCCINATE
     Dates: start: 20141018
  14. SYNRIBO [Suspect]
     Active Substance: OMACETAXINE MEPESUCCINATE
     Dosage: DOSAGE FORM: 205MG/0.71ML, TWICE A DAY FOR 14 DAYS.
     Dates: start: 20180307
  15. COMPAZINE [Concomitant]
     Active Substance: PROCHLORPERAZINE MALEATE
     Dosage: 30 MILLIGRAM DAILY; AS NEEDED
  16. ZOFRAN [Concomitant]
     Active Substance: ONDANSETRON HYDROCHLORIDE
     Dosage: 32 MILLIGRAM DAILY; AS NEEDED

REACTIONS (9)
  - Gastrointestinal haemorrhage [Unknown]
  - Cholecystectomy [Unknown]
  - Intestinal haemorrhage [Unknown]
  - Vomiting [Unknown]
  - White blood cell count increased [Unknown]
  - Drug ineffective [Unknown]
  - Injection site erythema [Unknown]
  - Nausea [Not Recovered/Not Resolved]
  - Gastrooesophageal reflux disease [Unknown]

NARRATIVE: CASE EVENT DATE: 201103
